FAERS Safety Report 4917093-5 (Version None)
Quarter: 2006Q1

REPORT INFORMATION
  Report Type: 
  Country: None (occurrence: None)
  Receive Date: 20060221
  Receipt Date: 20060213
  Transmission Date: 20060701
  Serious: Yes (Other)
  Sender: FDA-Public Use
  Company Number: PHFR2006GB00844

PATIENT
  Age: 64 Year
  Sex: Male
  Weight: 87.2 kg

DRUGS (2)
  1. FENTANYL [Concomitant]
     Dosage: 400 MCG/DAY
     Route: 062
  2. ZOMETA [Suspect]
     Indication: MULTIPLE MYELOMA
     Dosage: 4 MG, QMO
     Route: 042
     Dates: start: 20020816, end: 20060125

REACTIONS (3)
  - INFECTION [None]
  - OSTEONECROSIS [None]
  - PAIN IN JAW [None]
